FAERS Safety Report 10904359 (Version 1)
Quarter: 2015Q1

REPORT INFORMATION
  Report Type: Spontaneous
  Country: US (occurrence: None)
  Receive Date: 20150304
  Receipt Date: 20150304
  Transmission Date: 20150721
  Serious: Yes (Other)
  Sender: FDA-Public Use
  Company Number: None

PATIENT

DRUGS (1)
  1. COMBIGAN [Suspect]
     Active Substance: BRIMONIDINE TARTRATE\TIMOLOL MALEATE
     Indication: ANGLE CLOSURE GLAUCOMA
     Dosage: 1 DROP TWICE A DAY 1 DROP IN EYE?SEVERAL YEARS STILL USING IT

REACTIONS (5)
  - Product quality issue [None]
  - Lacrimation increased [None]
  - Dermatitis [None]
  - Unevaluable event [None]
  - Skin fissures [None]

NARRATIVE: CASE EVENT DATE: 20150105
